FAERS Safety Report 24794248 (Version 1)
Quarter: 2024Q4

REPORT INFORMATION
  Report Type: Spontaneous
  Country: HR (occurrence: HR)
  Receive Date: 20241231
  Receipt Date: 20241231
  Transmission Date: 20250115
  Serious: Yes (Other)
  Sender: MYLAN
  Company Number: None

PATIENT
  Age: 18 Year
  Sex: Male

DRUGS (5)
  1. LYRICA [Suspect]
     Active Substance: PREGABALIN
     Indication: Product used for unknown indication
     Dosage: 400 MILLIGRAM, QD
     Route: 048
     Dates: start: 20241105, end: 20241105
  2. XANAX [Suspect]
     Active Substance: ALPRAZOLAM
     Indication: Product used for unknown indication
     Dosage: 0.25 MILLIGRAM, QD
     Route: 048
     Dates: start: 20241105, end: 20241105
  3. GABAPENTIN [Suspect]
     Active Substance: GABAPENTIN
     Indication: Product used for unknown indication
     Dosage: 400 MILLIGRAM, QD
     Route: 048
     Dates: start: 20241105, end: 20241105
  4. TRAMADOL [Suspect]
     Active Substance: TRAMADOL
     Indication: Product used for unknown indication
     Dosage: 450 MILLIGRAM, QD
     Route: 048
     Dates: start: 20241105, end: 20241105
  5. RIVOTRIL [Suspect]
     Active Substance: CLONAZEPAM
     Indication: Product used for unknown indication
     Dosage: 1 MILLIGRAM, QD
     Route: 048
     Dates: start: 20241105, end: 20241105

REACTIONS (2)
  - Paraesthesia [Unknown]
  - Drug abuse [Unknown]

NARRATIVE: CASE EVENT DATE: 20241105
